FAERS Safety Report 9434423 (Version 1)
Quarter: 2013Q3

REPORT INFORMATION
  Report Type: Spontaneous
  Country: KR (occurrence: KR)
  Receive Date: 20130725
  Receipt Date: 20130725
  Transmission Date: 20140515
  Serious: Yes (Other)
  Sender: FDA-Public Use
  Company Number: ENTC2013-0039

PATIENT
  Age: 75 Year
  Sex: Female

DRUGS (2)
  1. STALEVO [Suspect]
     Indication: PARKINSON^S DISEASE
     Route: 048
     Dates: start: 201004
  2. MIRAPEX [Concomitant]

REACTIONS (4)
  - Chromaturia [None]
  - Drug dose omission [None]
  - Gastric disorder [None]
  - Hepatitis [None]
